FAERS Safety Report 5637899-7 (Version None)
Quarter: 2008Q1

REPORT INFORMATION
  Report Type: 
  Country: None (occurrence: None)
  Receive Date: 20080222
  Receipt Date: 20080222
  Transmission Date: 20080703
  Serious: Yes (Other)
  Sender: FDA-Public Use
  Company Number: None

PATIENT
  Age: 60 Year
  Sex: Female
  Weight: 97.0698 kg

DRUGS (1)
  1. WELCHOL [Suspect]
     Dosage: 3 MORNING ONCE; OFF AND ON; 3 EVENING ONCE

REACTIONS (1)
  - PAIN IN EXTREMITY [None]
